FAERS Safety Report 5026199-4 (Version None)
Quarter: 2006Q2

REPORT INFORMATION
  Report Type: 
  Country: None (occurrence: None)
  Receive Date: 20060614
  Receipt Date: 20051102
  Transmission Date: 20061013
  Serious: Yes (Hospitalization, Disabling)
  Sender: FDA-Public Use
  Company Number: FR-MERCK-0511FRA00010

PATIENT
  Age: 67 Year
  Sex: Male

DRUGS (6)
  1. ZOCOR [Suspect]
     Indication: HYPERCHOLESTEROLAEMIA
     Route: 048
     Dates: start: 19960501, end: 20010101
  2. ZOCOR [Suspect]
     Route: 048
     Dates: start: 20010101, end: 20050201
  3. ZOCOR [Suspect]
     Indication: CORONARY ARTERY DISEASE
     Route: 048
     Dates: start: 19960501, end: 20010101
  4. ZOCOR [Suspect]
     Route: 048
     Dates: start: 20010101, end: 20050201
  5. ATENOLOL [Concomitant]
     Indication: CORONARY ARTERY DISEASE
     Route: 048
     Dates: start: 19960501
  6. ASPIRIN [Concomitant]
     Indication: CORONARY ARTERY DISEASE
     Route: 048
     Dates: start: 19960501

REACTIONS (4)
  - MYALGIA [None]
  - PERIPHERAL SENSORY NEUROPATHY [None]
  - TENDON DISORDER [None]
  - TENDON RUPTURE [None]
